FAERS Safety Report 12654464 (Version 2)
Quarter: 2016Q3

REPORT INFORMATION
  Report Type: Report from Study
  Country: KR (occurrence: KR)
  Receive Date: 20160816
  Receipt Date: 20160902
  Transmission Date: 20161109
  Serious: Yes (Hospitalization)
  Sender: FDA-Public Use
  Company Number: PHHY2016KR111370

PATIENT
  Age: 38 Year
  Sex: Female
  Weight: 63.3 kg

DRUGS (7)
  1. VOTRIENT [Suspect]
     Active Substance: PAZOPANIB HYDROCHLORIDE
     Indication: CARDIAC NEOPLASM UNSPECIFIED
     Dosage: 800 MG, QD
     Route: 048
     Dates: start: 20160513, end: 20160607
  2. WARFARIN [Concomitant]
     Active Substance: WARFARIN
     Indication: PULMONARY HYPERTENSION
     Dosage: 2.5 MG, UNK
     Route: 065
     Dates: start: 20151109
  3. IFOSFAMIDE. [Concomitant]
     Active Substance: IFOSFAMIDE
     Indication: PRODUCT USED FOR UNKNOWN INDICATION
     Route: 065
  4. ULTRACET [Concomitant]
     Active Substance: ACETAMINOPHEN\TRAMADOL HYDROCHLORIDE
     Indication: NEUROPATHY PERIPHERAL
     Dosage: UNK (EXTENDE RELEASE)
     Route: 065
     Dates: start: 20130419
  5. PACLITAXEL. [Concomitant]
     Active Substance: PACLITAXEL
     Indication: PRODUCT USED FOR UNKNOWN INDICATION
     Route: 065
  6. DOXORUBICIN HYDROCHLORIDE. [Concomitant]
     Active Substance: DOXORUBICIN HYDROCHLORIDE
     Indication: PRODUCT USED FOR UNKNOWN INDICATION
     Route: 065
  7. LYRICA [Concomitant]
     Active Substance: PREGABALIN
     Indication: NEUROPATHY PERIPHERAL
     Dosage: UNK
     Route: 065
     Dates: start: 20150527

REACTIONS (9)
  - Cough [Unknown]
  - Pericardial disease [Unknown]
  - Chest discomfort [Unknown]
  - Cardiac failure [Recovered/Resolved]
  - Product use issue [Unknown]
  - Pleural effusion [Unknown]
  - Malignant neoplasm progression [Unknown]
  - Pulmonary oedema [Unknown]
  - Dyspnoea [Unknown]

NARRATIVE: CASE EVENT DATE: 20160602
